FAERS Safety Report 10071427 (Version 1)
Quarter: 2014Q2

REPORT INFORMATION
  Report Type: Spontaneous
  Country: US (occurrence: US)
  Receive Date: 20140410
  Receipt Date: 20140410
  Transmission Date: 20141212
  Serious: No
  Sender: FDA-Public Use
  Company Number: US-ENDO PHARMACEUTICALS INC.-CYCB20140001

PATIENT
  Sex: Male

DRUGS (1)
  1. CYCLOBENZAPRINE HYDROCHLORIDE 10MG [Suspect]
     Indication: MUSCLE STRAIN
     Route: 048
     Dates: start: 20140106, end: 201401

REACTIONS (5)
  - Heart rate increased [Not Recovered/Not Resolved]
  - Urine flow decreased [Recovering/Resolving]
  - Hypertension [Not Recovered/Not Resolved]
  - Urinary retention [Recovering/Resolving]
  - Tinnitus [Not Recovered/Not Resolved]
